FAERS Safety Report 9987971 (Version 3)
Quarter: 2014Q2

REPORT INFORMATION
  Report Type: Spontaneous
  Country: KR (occurrence: KR)
  Receive Date: 20140307
  Receipt Date: 20140428
  Transmission Date: 20141212
  Serious: Yes (Death, Other)
  Sender: FDA-Public Use
  Company Number: KR-ASTRAZENECA-2014SE16150

PATIENT
  Age: 83 Year
  Sex: Male

DRUGS (2)
  1. BRILINTA [Suspect]
     Route: 048
  2. ABCIXIMAB [Concomitant]

REACTIONS (9)
  - Dyspnoea [Fatal]
  - Pneumonia [Fatal]
  - Acute respiratory distress syndrome [Fatal]
  - Vomiting [Fatal]
  - Dehydration [Fatal]
  - Pulmonary congestion [Fatal]
  - Aspiration [Unknown]
  - Staphylococcus test positive [Unknown]
  - Nausea [Unknown]
